FAERS Safety Report 17124265 (Version 2)
Quarter: 2020Q1

REPORT INFORMATION
  Report Type: Spontaneous
  Country: JP (occurrence: JP)
  Receive Date: 20191206
  Receipt Date: 20200211
  Transmission Date: 20200409
  Serious: Yes (Other)
  Sender: FDA-Public Use
  Company Number: JP-INCYTE CORPORATION-2019IN011828

PATIENT

DRUGS (1)
  1. JAKAVI [Suspect]
     Active Substance: RUXOLITINIB
     Indication: MYELOFIBROSIS
     Dosage: 20 MG, QD
     Route: 065
     Dates: start: 201504, end: 201705

REACTIONS (7)
  - Diarrhoea [Unknown]
  - Infection [Unknown]
  - Ileal ulcer perforation [Unknown]
  - Abdominal pain [Unknown]
  - Enteritis [Unknown]
  - Pyrexia [Unknown]
  - Impaired healing [Unknown]

NARRATIVE: CASE EVENT DATE: 201703
